FAERS Safety Report 7465445-4 (Version None)
Quarter: 2011Q2

REPORT INFORMATION
  Report Type: 
  Country: None (occurrence: None)
  Receive Date: 20110509
  Receipt Date: 20110427
  Transmission Date: 20111010
  Serious: Yes (Other)
  Sender: FDA-Public Use
  Company Number: US-ROCHE-743240

PATIENT
  Sex: Female
  Weight: 62.1 kg

DRUGS (4)
  1. ACCUTANE [Suspect]
     Indication: ACNE
     Route: 065
     Dates: start: 19880101, end: 19910101
  2. ACCUTANE [Suspect]
     Route: 065
     Dates: start: 19890101, end: 19920101
  3. CLINDAMYCIN [Concomitant]
  4. RETIN-A [Concomitant]

REACTIONS (8)
  - COLITIS ULCERATIVE [None]
  - BIPOLAR DISORDER [None]
  - IRRITABLE BOWEL SYNDROME [None]
  - INTESTINAL OBSTRUCTION [None]
  - DEPRESSION [None]
  - SUICIDAL IDEATION [None]
  - INFLAMMATORY BOWEL DISEASE [None]
  - GASTROINTESTINAL INJURY [None]
